FAERS Safety Report 18410969 (Version 1)
Quarter: 2020Q4

REPORT INFORMATION
  Report Type: Spontaneous
  Country: GB (occurrence: GB)
  Receive Date: 20201021
  Receipt Date: 20201021
  Transmission Date: 20210114
  Serious: Yes (Death)
  Sender: FDA-Public Use
  Company Number: GB-SA-2020SA294403

PATIENT

DRUGS (2)
  1. LEFLUNOMIDE. [Suspect]
     Active Substance: LEFLUNOMIDE
     Indication: B-CELL LYMPHOMA
     Route: 042
     Dates: start: 20200923, end: 20200928
  2. RITUXIMAB. [Suspect]
     Active Substance: RITUXIMAB
     Indication: B-CELL LYMPHOMA
     Dosage: UNK
     Route: 042
     Dates: start: 20200923, end: 20200928

REACTIONS (1)
  - Hyperammonaemia [Fatal]

NARRATIVE: CASE EVENT DATE: 20200924
